FAERS Safety Report 18054048 (Version 13)
Quarter: 2021Q4

REPORT INFORMATION
  Report Type: Spontaneous
  Country: US (occurrence: US)
  Receive Date: 20200722
  Receipt Date: 20211117
  Transmission Date: 20220303
  Serious: Yes (Other)
  Sender: FDA-Public Use
  Company Number: US-PFIZER INC-2020279422

PATIENT
  Age: 70 Year
  Sex: Female
  Weight: 61.23 kg

DRUGS (4)
  1. IBRANCE [Suspect]
     Active Substance: PALBOCICLIB
     Dosage: UNK
  2. IBRANCE [Suspect]
     Active Substance: PALBOCICLIB
     Dosage: 75 MG, DAILY
     Route: 048
  3. IBRANCE [Suspect]
     Active Substance: PALBOCICLIB
     Dosage: 75 MG
  4. LETROZOLE [Suspect]
     Active Substance: LETROZOLE
     Dosage: UNK

REACTIONS (38)
  - Dermatitis exfoliative [Unknown]
  - Blood glucose increased [Unknown]
  - Blood calcium increased [Unknown]
  - Cardiac failure [Unknown]
  - Diabetes mellitus [Not Recovered/Not Resolved]
  - Blindness transient [Unknown]
  - Memory impairment [Unknown]
  - Fatigue [Not Recovered/Not Resolved]
  - Rash erythematous [Unknown]
  - Rash [Recovered/Resolved]
  - Burning sensation [Unknown]
  - Somnolence [Unknown]
  - Insomnia [Recovered/Resolved]
  - Eating disorder [Unknown]
  - Cerebral disorder [Unknown]
  - Headache [Recovered/Resolved]
  - Tremor [Unknown]
  - Neoplasm progression [Unknown]
  - Crying [Unknown]
  - Weight decreased [Not Recovered/Not Resolved]
  - Weight increased [Unknown]
  - Asthenopia [Unknown]
  - Visual impairment [Unknown]
  - Asthenia [Not Recovered/Not Resolved]
  - Dyspnoea [Not Recovered/Not Resolved]
  - Alopecia [Unknown]
  - Exercise tolerance decreased [Unknown]
  - Underweight [Unknown]
  - Mobility decreased [Unknown]
  - Pain [Unknown]
  - Renal function test abnormal [Unknown]
  - Hypoaesthesia [Not Recovered/Not Resolved]
  - Gait disturbance [Unknown]
  - Back pain [Unknown]
  - Pruritus [Recovering/Resolving]
  - Contusion [Recovering/Resolving]
  - Decreased appetite [Unknown]
  - Aphonia [Unknown]

NARRATIVE: CASE EVENT DATE: 20201101
